FAERS Safety Report 6520854-2 (Version None)
Quarter: 2009Q4

REPORT INFORMATION
  Report Type: 
  Country: None (occurrence: None)
  Receive Date: 20091229
  Receipt Date: 20091214
  Transmission Date: 20100525
  Serious: Yes (Death, Other)
  Sender: FDA-Public Use
  Company Number: JP-PFIZER INC-2009304516

PATIENT
  Sex: Male
  Weight: 58.5 kg

DRUGS (3)
  1. SILDENAFIL CITRATE [Suspect]
     Indication: PULMONARY ARTERIAL HYPERTENSION
     Dosage: 20 MG, 3X/DAY
     Route: 048
     Dates: start: 20081122, end: 20081215
  2. NORADRENALINE [Concomitant]
  3. WARFARIN [Concomitant]
     Route: 048

REACTIONS (2)
  - AORTIC VALVE STENOSIS [None]
  - CONDITION AGGRAVATED [None]
